FAERS Safety Report 4711088-2 (Version None)
Quarter: 2005Q3

REPORT INFORMATION
  Report Type: 
  Country: None (occurrence: None)
  Receive Date: 20050707
  Receipt Date: 20050701
  Transmission Date: 20060218
  Serious: Yes (Hospitalization)
  Sender: FDA-Public Use
  Company Number: GBWYE657811MAY05

PATIENT
  Sex: Female

DRUGS (2)
  1. EFFEXOR [Suspect]
  2. CARDIAC THERAPY (CARDIAC THERAPY) [Concomitant]

REACTIONS (1)
  - UNEVALUABLE EVENT [None]
